FAERS Safety Report 21089232 (Version 1)
Quarter: 2022Q3

REPORT INFORMATION
  Report Type: Spontaneous
  Country: HK (occurrence: HK)
  Receive Date: 20220715
  Receipt Date: 20220715
  Transmission Date: 20221027
  Serious: Yes (Other)
  Sender: FDA-Public Use
  Company Number: HK-TAKEDA-2022TUS047285

PATIENT
  Age: 55 Year
  Sex: Female

DRUGS (2)
  1. BRIGATINIB [Suspect]
     Active Substance: BRIGATINIB
     Indication: Non-small cell lung cancer stage IV
     Dosage: 180 MILLIGRAM, QD
     Route: 065
  2. BRIGATINIB [Suspect]
     Active Substance: BRIGATINIB
     Indication: Metastases to central nervous system
     Dosage: 90 MILLIGRAM, QD
     Route: 065

REACTIONS (1)
  - Hepatotoxicity [Not Recovered/Not Resolved]
